FAERS Safety Report 21673404 (Version 1)
Quarter: 2022Q4

REPORT INFORMATION
  Report Type: Spontaneous
  Country: JP (occurrence: None)
  Receive Date: 20221202
  Receipt Date: 20221202
  Transmission Date: 20230112
  Serious: Yes (Other)
  Sender: FDA-Public Use
  Company Number: 2022A390340

PATIENT
  Age: 80 Year
  Sex: Female

DRUGS (7)
  1. LYNPARZA [Suspect]
     Active Substance: OLAPARIB
     Indication: Ovarian cancer recurrent
     Route: 048
  2. LYNPARZA [Suspect]
     Active Substance: OLAPARIB
     Indication: Ovarian cancer recurrent
     Route: 048
  3. LYNPARZA [Suspect]
     Active Substance: OLAPARIB
     Indication: Ovarian cancer recurrent
     Route: 048
  4. DOXIL [Concomitant]
     Active Substance: DOXORUBICIN HYDROCHLORIDE
     Indication: Ovarian cancer recurrent
     Dosage: DOSE UNKNOWN
     Route: 065
  5. CARBOPLATIN [Concomitant]
     Active Substance: CARBOPLATIN
     Indication: Ovarian cancer recurrent
     Dosage: DOSE UNKNOWN
     Route: 065
  6. BEVACIZUMAB [Concomitant]
     Active Substance: BEVACIZUMAB
     Indication: Ovarian cancer recurrent
     Dosage: DOSE UNKNOWN
     Route: 065
  7. GEMCITABINE [Concomitant]
     Active Substance: GEMCITABINE
     Indication: Ovarian cancer recurrent
     Dosage: DOSE UNKNOWN
     Route: 065

REACTIONS (2)
  - Haematotoxicity [Recovering/Resolving]
  - Nail disorder [Recovering/Resolving]
